FAERS Safety Report 9457683 (Version 2)
Quarter: 2013Q3

REPORT INFORMATION
  Report Type: Spontaneous
  Country: US (occurrence: None)
  Receive Date: 20130809
  Receipt Date: 20130819
  Transmission Date: 20140515
  Serious: Yes (Life-Threatening, Hospitalization)
  Sender: FDA-Public Use
  Company Number: US-012507

PATIENT
  Sex: Female
  Weight: 51.71 kg

DRUGS (1)
  1. PICO-SALAX [Suspect]
     Indication: BOWEL PREPARATION
     Dosage: 2 DOSES
     Dates: start: 20130723, end: 20130723

REACTIONS (4)
  - Convulsion [None]
  - Hyponatraemia [None]
  - Asthenia [None]
  - Disorientation [None]
